FAERS Safety Report 6300896-2 (Version None)
Quarter: 2009Q3

REPORT INFORMATION
  Report Type: 
  Country: None (occurrence: None)
  Receive Date: 20090807
  Receipt Date: 20090331
  Transmission Date: 20100115
  Serious: Yes (Death, Other)
  Sender: FDA-Public Use
  Company Number: US-BAYER-200920305NA

PATIENT
  Age: 50 Year
  Sex: Male
  Weight: 90 kg

DRUGS (18)
  1. MAGNEVIST [Suspect]
     Indication: NUCLEAR MAGNETIC RESONANCE IMAGING
     Dates: start: 20020117, end: 20020117
  2. MAGNEVIST [Suspect]
     Dates: start: 20020208, end: 20020208
  3. MAGNEVIST [Suspect]
     Dates: start: 20020521, end: 20020521
  4. MAGNEVIST [Suspect]
     Dates: start: 20020306, end: 20020306
  5. MAGNEVIST [Suspect]
     Dates: start: 20020711, end: 20020711
  6. MAGNEVIST [Suspect]
     Dates: start: 20060306, end: 20060306
  7. COUMADIN [Concomitant]
  8. ASPIRIN [Concomitant]
     Route: 048
  9. CARVEDILOL [Concomitant]
  10. GABAPENTIN [Concomitant]
     Route: 048
  11. NEPHROVITE [Concomitant]
  12. OMEPRAZOLE [Concomitant]
  13. SEVELAMER [Concomitant]
  14. EPO [Concomitant]
  15. TACROLIMUS [Concomitant]
  16. METOPROLOL TARTRATE [Concomitant]
  17. LANTUS [Concomitant]
  18. NOVOLOG [Concomitant]

REACTIONS (8)
  - EXERCISE TOLERANCE DECREASED [None]
  - FIBROSIS [None]
  - FUNCTIONAL RESIDUAL CAPACITY DECREASED [None]
  - HYPOKINESIA [None]
  - MOBILITY DECREASED [None]
  - NEPHROGENIC SYSTEMIC FIBROSIS [None]
  - SKIN HYPERTROPHY [None]
  - SKIN TIGHTNESS [None]
